FAERS Safety Report 5531877-4 (Version None)
Quarter: 2007Q4

REPORT INFORMATION
  Report Type: 
  Country: None (occurrence: None)
  Receive Date: 20071119
  Receipt Date: 20070804
  Transmission Date: 20080405
  Serious: No
  Sender: FDA-Public Use
  Company Number: TPA2007A01651

PATIENT
  Age: 65 Year
  Sex: Male

DRUGS (1)
  1. ROZEREM [Suspect]
     Dosage: 8 MG, ONCE, PER ORAL
     Route: 048
     Dates: start: 20070803, end: 20070804

REACTIONS (12)
  - ABDOMINAL PAIN UPPER [None]
  - BACK PAIN [None]
  - DYSURIA [None]
  - GAIT DISTURBANCE [None]
  - HEADACHE [None]
  - INITIAL INSOMNIA [None]
  - MALAISE [None]
  - MUSCLE SPASMS [None]
  - NIGHTMARE [None]
  - PARAESTHESIA [None]
  - PERIPHERAL COLDNESS [None]
  - TREMOR [None]
